FAERS Safety Report 10440754 (Version 2)
Quarter: 2014Q3

REPORT INFORMATION
  Report Type: Spontaneous
  Country: CA (occurrence: CA)
  Receive Date: 20140909
  Receipt Date: 20140912
  Transmission Date: 20150326
  Serious: Yes (Death, Hospitalization)
  Sender: FDA-Public Use
  Company Number: CA-AMGEN-CANSP2014068029

PATIENT
  Age: 61 Year
  Sex: Female

DRUGS (1)
  1. SENSIPAR [Suspect]
     Active Substance: CINACALCET HYDROCHLORIDE
     Indication: RENAL FAILURE CHRONIC
     Dosage: 90 MG, QD
     Route: 048
     Dates: start: 20081108, end: 2014

REACTIONS (1)
  - Pulmonary hypertension [Fatal]
